FAERS Safety Report 8581599-0 (Version None)
Quarter: 2012Q3

REPORT INFORMATION
  Report Type: 
  Country: None (occurrence: None)
  Receive Date: 20120809
  Receipt Date: 20120801
  Transmission Date: 20120928
  Serious: Yes (Hospitalization, Other)
  Sender: FDA-Public Use
  Company Number: US-ASTELLAS-2012US005639

PATIENT
  Sex: Male
  Weight: 84 kg

DRUGS (9)
  1. NEXIUM [Concomitant]
     Indication: ABDOMINAL DISCOMFORT
     Dosage: 40 MG, UID/QD
     Route: 048
     Dates: start: 19990101
  2. LANTUS [Concomitant]
     Indication: DIABETES MELLITUS
     Dosage: 25 U, QHS
     Route: 058
  3. NOVOLOG [Concomitant]
     Indication: DIABETES MELLITUS
     Dosage: 4-6 U, BEFORE MEALS AND EVERY PM
     Route: 058
  4. PROGRAF [Suspect]
     Indication: PANCREAS TRANSPLANT
  5. CELLCEPT [Concomitant]
     Indication: RENAL TRANSPLANT
     Dosage: 1000 MG, BID
     Route: 048
     Dates: start: 20050801
  6. CELLCEPT [Concomitant]
     Indication: PANCREAS TRANSPLANT
  7. COZAAR [Concomitant]
     Indication: HYPERTENSION
     Dosage: 25 MG, BID
     Route: 048
     Dates: start: 20100101
  8. ASPIRIN [Concomitant]
     Indication: PLATELET AGGREGATION INHIBITION
     Dosage: 81 MG, UID/QD
     Route: 048
     Dates: start: 19920101
  9. PROGRAF [Suspect]
     Indication: RENAL TRANSPLANT
     Dosage: 4 MG, BID
     Route: 048
     Dates: start: 20050801

REACTIONS (6)
  - POST PROCEDURAL COMPLICATION [None]
  - ROTATOR CUFF SYNDROME [None]
  - FALL [None]
  - OFF LABEL USE [None]
  - LACERATION [None]
  - RENAL TRANSPLANT [None]
